FAERS Safety Report 5092477-6 (Version None)
Quarter: 2006Q3

REPORT INFORMATION
  Report Type: 
  Country: None (occurrence: None)
  Receive Date: 20060830
  Receipt Date: 20060316
  Transmission Date: 20061208
  Serious: Yes (Life-Threatening, Hospitalization, Disabling)
  Sender: FDA-Public Use
  Company Number: US-GLAXOSMITHKLINE-A0598045A

PATIENT
  Age: 40 Year
  Sex: Male

DRUGS (51)
  1. ALBENZA [Suspect]
     Indication: MICROSPORIDIA INFECTION
     Dosage: 400MG TWICE PER DAY
     Route: 048
  2. LEXIVA [Concomitant]
  3. EPIVIR [Concomitant]
  4. VALCYTE [Concomitant]
  5. MEGACE [Concomitant]
  6. FLAX SEED OIL [Concomitant]
  7. ALLEGRA [Concomitant]
  8. DIFLUCAN [Concomitant]
  9. NEURONTIN [Concomitant]
  10. K-DUR 10 [Concomitant]
  11. NEUTRAPHOS [Concomitant]
  12. NEXIUM [Concomitant]
  13. REMERON [Concomitant]
  14. INVIRASE [Concomitant]
  15. BICITRA [Concomitant]
  16. MAGNESIUM OXIDE [Concomitant]
  17. TYLENOL [Concomitant]
  18. NOVOLIN R [Concomitant]
  19. VIDEX [Concomitant]
  20. VICODIN [Concomitant]
  21. MORPHINE [Concomitant]
  22. PROMETHAZINE [Concomitant]
  23. HEPARIN LOCK-FLUSH [Concomitant]
  24. SODIUM BICARBONATE [Concomitant]
  25. ALBUMIN [Concomitant]
  26. LOVENOX [Concomitant]
  27. HESPAN [Concomitant]
  28. CORTROSYN [Concomitant]
  29. BENADRYL [Concomitant]
  30. NYSTATIN [Concomitant]
  31. AMIDATE [Concomitant]
  32. NORCURON [Concomitant]
  33. DIPRIVAN [Concomitant]
  34. OMNIPAQUE 240 [Concomitant]
  35. LIDOCAINE [Concomitant]
  36. SOLU-CORTEF [Concomitant]
  37. ZITHROMAX [Concomitant]
  38. DECADRON [Concomitant]
  39. REGLAN [Concomitant]
  40. RITONAVIR [Concomitant]
  41. LEVAQUIN [Concomitant]
  42. CEFTRIAXONE [Concomitant]
  43. MAGNESIUM SULFATE [Concomitant]
  44. CEFTAZIDIME [Concomitant]
  45. VANCOMYCIN [Concomitant]
  46. NEUPOGEN [Concomitant]
  47. FERROUS SULFATE TAB [Concomitant]
  48. CEFEPIME [Concomitant]
  49. CASPOFUNGIN [Concomitant]
  50. FOSCARNET [Concomitant]
  51. VASOPRESSIN [Concomitant]

REACTIONS (3)
  - ANAEMIA [None]
  - PANCYTOPENIA [None]
  - WHITE BLOOD CELL COUNT DECREASED [None]
